FAERS Safety Report 9439693 (Version 1)
Quarter: 2013Q3

REPORT INFORMATION
  Report Type: Spontaneous
  Country: US (occurrence: US)
  Receive Date: 20130805
  Receipt Date: 20130805
  Transmission Date: 20140515
  Serious: No
  Sender: FDA-Public Use
  Company Number: US-PFIZER INC-2013224811

PATIENT
  Age: 63 Year
  Sex: Female
  Weight: 107 kg

DRUGS (15)
  1. LYRICA [Suspect]
     Indication: FIBROMYALGIA
     Dosage: 75 MG, 3X/DAY
  2. LYRICA [Suspect]
     Indication: NERVE INJURY
  3. LYRICA [Suspect]
     Indication: NEURALGIA
  4. CYMBALTA [Concomitant]
     Indication: FIBROMYALGIA
     Dosage: 60 MG, 1X/DAY
  5. CYMBALTA [Concomitant]
     Indication: NERVE INJURY
  6. CYMBALTA [Concomitant]
     Indication: NEURALGIA
  7. HYDROCODONE [Concomitant]
     Indication: FIBROMYALGIA
     Dosage: 7.5 MG, 3X/DAY
  8. HYDROCODONE [Concomitant]
     Indication: NERVE INJURY
  9. HYDROCODONE [Concomitant]
     Indication: NEURALGIA
  10. CLONAZEPAM [Concomitant]
     Indication: FIBROMYALGIA
     Dosage: 0.5 MG, 3X/DAY
  11. CLONAZEPAM [Concomitant]
     Indication: NERVE INJURY
  12. CLONAZEPAM [Concomitant]
     Indication: NEURALGIA
  13. COUMADIN [Concomitant]
     Indication: COAGULOPATHY
     Dosage: 7.5 MG, 1X/DAY
  14. PLAVIX [Concomitant]
     Indication: COAGULOPATHY
     Dosage: 75 MG, 1X/DAY
  15. AMBIEN [Concomitant]
     Indication: SLEEP DISORDER
     Dosage: 10 MG, 1X/DAY

REACTIONS (1)
  - Pain [Unknown]
